FAERS Safety Report 10726238 (Version 1)
Quarter: 2015Q1

REPORT INFORMATION
  Report Type: Spontaneous
  Country: US (occurrence: None)
  Receive Date: 20150120
  Receipt Date: 20150120
  Transmission Date: 20150721
  Serious: No
  Sender: FDA-Public Use
  Company Number: None

PATIENT
  Age: 60 Year
  Sex: Male

DRUGS (1)
  1. MYCOPHENOLATE [Suspect]
     Active Substance: MYCOPHENOLIC ACID
     Dosage: STRENGTH: 250
     Dates: start: 20110716

REACTIONS (2)
  - Rash [None]
  - Skin disorder [None]

NARRATIVE: CASE EVENT DATE: 20140601
